FAERS Safety Report 4793779-0 (Version None)
Quarter: 2005Q4

REPORT INFORMATION
  Report Type: 
  Country: None (occurrence: None)
  Receive Date: 20051006
  Receipt Date: 20050923
  Transmission Date: 20060501
  Serious: Yes (Life-Threatening, Other)
  Sender: FDA-Public Use
  Company Number: 2005135278

PATIENT
  Age: 51 Year
  Sex: Male
  Weight: 99.7913 kg

DRUGS (2)
  1. ZMAX [Suspect]
     Indication: UPPER RESPIRATORY TRACT INFECTION
     Dosage: 2 GRAM (2 GRAM, 1 IN 1 D)
     Dates: start: 20050901, end: 20050901
  2. ALL OTHER THERAPEUTIC PRODUCTS (ALL OTHER THERAPEUTIC PRODUCTS) [Suspect]
     Indication: ILL-DEFINED DISORDER
     Dosage: ORAL
     Route: 048

REACTIONS (25)
  - ABDOMINAL PAIN [None]
  - ANXIETY [None]
  - BLOOD TRIGLYCERIDES INCREASED [None]
  - COLD SWEAT [None]
  - CONVULSION [None]
  - COUGH [None]
  - DIARRHOEA [None]
  - DISEASE RECURRENCE [None]
  - DRUG INEFFECTIVE [None]
  - DYSPNOEA [None]
  - ERYTHEMA [None]
  - INSOMNIA [None]
  - LACRIMATION INCREASED [None]
  - LARYNGEAL ERYTHEMA [None]
  - LARYNX IRRITATION [None]
  - NASAL DISCOMFORT [None]
  - NAUSEA [None]
  - RHINORRHOEA [None]
  - SINUS DISORDER [None]
  - SNEEZING [None]
  - THROAT IRRITATION [None]
  - UNEVALUABLE EVENT [None]
  - UPPER RESPIRATORY TRACT INFECTION [None]
  - VOMITING [None]
  - WHEEZING [None]
